FAERS Safety Report 7997485-0 (Version None)
Quarter: 2011Q4

REPORT INFORMATION
  Report Type: 
  Country: None (occurrence: None)
  Receive Date: 20111221
  Receipt Date: 20111221
  Transmission Date: 20120403
  Serious: Yes (Hospitalization)
  Sender: FDA-Public Use
  Company Number: None

PATIENT
  Age: 32 Year
  Sex: Female
  Weight: 58.059 kg

DRUGS (1)
  1. ONDANSETRON HYDROCHLORIDE [Suspect]
     Indication: NAUSEA
     Dosage: 8 MG
     Route: 048

REACTIONS (4)
  - DRUG HYPERSENSITIVITY [None]
  - CHILLS [None]
  - VISION BLURRED [None]
  - PALPITATIONS [None]
